FAERS Safety Report 10932649 (Version 1)
Quarter: 2015Q1

REPORT INFORMATION
  Report Type: Spontaneous
  Country: US (occurrence: None)
  Receive Date: 20150318
  Receipt Date: 20150318
  Transmission Date: 20150721
  Serious: Yes (Hospitalization)
  Sender: FDA-Public Use
  Company Number: FK201501272

PATIENT
  Age: 32 Week
  Sex: Male

DRUGS (4)
  1. FLUOROURACIL (MANUFACTURER UNKNOWN) (FLUOROURACIL) (FLUOROURACIL) [Suspect]
     Active Substance: FLUOROURACIL
     Indication: HEPATOBLASTOMA
     Dosage: 4 CYCLES
  2. VINCRISTINE [Suspect]
     Active Substance: VINCRISTINE
     Indication: HEPATOBLASTOMA
  3. CISPLATIN (MANUFACTURER UNKNOWN) (CISPLATIN) (CISPLATIN) [Suspect]
     Active Substance: CISPLATIN
     Indication: HEPATOBLASTOMA
     Dosage: 4 CYCLES
  4. CARBOPLATIN. [Concomitant]
     Active Substance: CARBOPLATIN

REACTIONS (12)
  - Hyperglycaemia [None]
  - Febrile neutropenia [None]
  - Osteopenia [None]
  - Staphylococcal sepsis [None]
  - Thrombocytopenia [None]
  - Hypercalcaemia [None]
  - Deafness neurosensory [None]
  - Anaemia [None]
  - Femur fracture [None]
  - Dermatitis diaper [None]
  - Metabolic acidosis [None]
  - Pelvic fracture [None]
